FAERS Safety Report 4279417-4 (Version None)
Quarter: 2004Q1

REPORT INFORMATION
  Report Type: 
  Country: None (occurrence: None)
  Receive Date: 20040127
  Receipt Date: 20031125
  Transmission Date: 20041129
  Serious: No
  Sender: FDA-Public Use
  Company Number: US-BRISTOL-MYERS SQUIBB COMPANY-12443701

PATIENT
  Age: 51 Year
  Sex: Male
  Weight: 86 kg

DRUGS (2)
  1. DOVONEX [Suspect]
     Indication: PSORIASIS
     Dosage: 0.005% DOVONEX
     Route: 061
  2. ULTRAVATE [Suspect]
     Indication: PSORIASIS
     Dosage: 0.05% ULTRAVATE
     Route: 061

REACTIONS (1)
  - DRUG INEFFECTIVE [None]
